FAERS Safety Report 6612223-1 (Version None)
Quarter: 2010Q1

REPORT INFORMATION
  Report Type: 
  Country: None (occurrence: None)
  Receive Date: 20100303
  Receipt Date: 20100222
  Transmission Date: 20100710
  Serious: Yes (Hospitalization)
  Sender: FDA-Public Use
  Company Number: US-AMGEN-KDL378386

PATIENT
  Sex: Male
  Weight: 64.5 kg

DRUGS (17)
  1. PROCRIT [Suspect]
     Indication: ANAEMIA
     Route: 058
     Dates: start: 20080301
  2. KENALOG [Concomitant]
  3. CARDURA [Concomitant]
     Route: 048
  4. PREDNISONE TAB [Concomitant]
  5. PROSCAR [Concomitant]
     Route: 048
  6. LASIX [Concomitant]
  7. POTASSIUM [Concomitant]
  8. LISINOPRIL [Concomitant]
  9. FOSAMAX [Concomitant]
  10. VITAMIN D [Concomitant]
  11. BABY ASPIRIN [Concomitant]
  12. CALCIUM [Concomitant]
  13. VITAMIN C [Concomitant]
  14. MELATONIN [Concomitant]
  15. ENSURE [Concomitant]
  16. MULTI-VITAMINS [Concomitant]
  17. FINASTERIDE [Concomitant]

REACTIONS (13)
  - CONSTIPATION [None]
  - EXCORIATION [None]
  - FALL [None]
  - HAEMOGLOBIN DECREASED [None]
  - HEAD INJURY [None]
  - HOSPITALISATION [None]
  - JOINT INJURY [None]
  - MOBILITY DECREASED [None]
  - OCCULT BLOOD POSITIVE [None]
  - OEDEMA PERIPHERAL [None]
  - RASH GENERALISED [None]
  - SERRATIA INFECTION [None]
  - URINARY TRACT INFECTION [None]
